FAERS Safety Report 12313315 (Version 2)
Quarter: 2016Q3

REPORT INFORMATION
  Report Type: Spontaneous
  Country: US (occurrence: US)
  Receive Date: 20160428
  Receipt Date: 20160805
  Transmission Date: 20161109
  Serious: No
  Sender: FDA-Public Use
  Company Number: US-PFIZER INC-2016197319

PATIENT
  Age: 73 Year
  Sex: Female
  Weight: 48.53 kg

DRUGS (2)
  1. NEURONTIN [Suspect]
     Active Substance: GABAPENTIN
     Indication: ANXIETY
     Dosage: 100 MG, 1X/DAY
     Route: 048
     Dates: start: 2004
  2. NEURONTIN [Suspect]
     Active Substance: GABAPENTIN
     Indication: DEPRESSION

REACTIONS (3)
  - Sedation [Unknown]
  - Product use issue [Unknown]
  - Drug intolerance [Unknown]

NARRATIVE: CASE EVENT DATE: 201603
